FAERS Safety Report 9916981 (Version 2)
Quarter: 2014Q1

REPORT INFORMATION
  Report Type: Spontaneous
  Country: IE (occurrence: IE)
  Receive Date: 20140221
  Receipt Date: 20140221
  Transmission Date: 20141002
  Serious: Yes (Other)
  Sender: FDA-Public Use
  Company Number: IE-009507513-1302IRL012630

PATIENT
  Age: 29 Year
  Sex: Female

DRUGS (1)
  1. IMPLANON NXT [Suspect]
     Indication: CONTRACEPTION
     Dosage: UNK
     Route: 059
     Dates: start: 20110119, end: 20130531

REACTIONS (5)
  - Surgery [Unknown]
  - Metrorrhagia [Unknown]
  - Medical device complication [Not Recovered/Not Resolved]
  - Medical device complication [Unknown]
  - Device difficult to use [Unknown]
